FAERS Safety Report 10502626 (Version 4)
Quarter: 2015Q3

REPORT INFORMATION
  Report Type: Spontaneous
  Country: US (occurrence: US)
  Receive Date: 20141007
  Receipt Date: 20150921
  Transmission Date: 20151125
  Serious: Yes (Hospitalization, Other)
  Sender: FDA-Public Use
  Company Number: US-BAYER-2014-146732

PATIENT
  Age: 50 Year
  Sex: Female
  Weight: 68.27 kg

DRUGS (6)
  1. METOPROLOL [Concomitant]
     Active Substance: METOPROLOL
     Indication: HYPERTENSION
     Dosage: 50 MG, UNK
     Dates: start: 201108
  2. TOPROL XL [Concomitant]
     Active Substance: METOPROLOL SUCCINATE
  3. MIRENA [Suspect]
     Active Substance: LEVONORGESTREL
     Indication: CONTRACEPTION
     Dosage: 20 MCG/24HR, CONT
     Route: 015
     Dates: start: 20051025, end: 20120815
  4. SYNTHROID [Concomitant]
     Active Substance: LEVOTHYROXINE SODIUM
     Indication: HYPOTHYROIDISM
     Dosage: UNK
     Dates: start: 201108
  5. PROVERA [Concomitant]
     Active Substance: MEDROXYPROGESTERONE ACETATE
  6. PREMARIN [ESTROGENS CONJUGATED] [Concomitant]

REACTIONS (11)
  - Depression [None]
  - Pelvic pain [None]
  - Injury [None]
  - Device issue [None]
  - Device dislocation [None]
  - Embedded device [None]
  - Intentional device misuse [None]
  - Uterine enlargement [None]
  - Ovarian cyst [None]
  - Vaginal haemorrhage [Recovered/Resolved]
  - Crying [None]

NARRATIVE: CASE EVENT DATE: 20100807
